FAERS Safety Report 9540443 (Version 2)
Quarter: 2013Q4

REPORT INFORMATION
  Report Type: Report from Study
  Country: HU (occurrence: HU)
  Receive Date: 20130920
  Receipt Date: 20131015
  Transmission Date: 20140711
  Serious: Yes (Death)
  Sender: FDA-Public Use
  Company Number: HU-GLAXOSMITHKLINE-B0923882A

PATIENT
  Sex: Female

DRUGS (1)
  1. SERETIDE DISKUS [Suspect]
     Indication: PRODUCT USED FOR UNKNOWN INDICATION
     Dosage: 1PUFF TWICE PER DAY
     Route: 055

REACTIONS (2)
  - Lung neoplasm malignant [Fatal]
  - Metastases to central nervous system [Fatal]
